FAERS Safety Report 5953513-5 (Version None)
Quarter: 2008Q4

REPORT INFORMATION
  Report Type: 
  Country: None (occurrence: None)
  Receive Date: 20081031
  Receipt Date: 20080609
  Transmission Date: 20090506
  Serious: No
  Sender: FDA-Public Use
  Company Number: 2008PV035692

PATIENT
  Age: 66 Year
  Sex: Female

DRUGS (7)
  1. SYMLIN [Suspect]
     Indication: TYPE 2 DIABETES MELLITUS
     Dosage: 60 MCG; BID; SC, 45 MCG; BID; SC, 30 MCG; BID; SC, 15 MCG; BID; SC
     Route: 058
     Dates: start: 20080101, end: 20080101
  2. SYMLIN [Suspect]
     Indication: TYPE 2 DIABETES MELLITUS
     Dosage: 60 MCG; BID; SC, 45 MCG; BID; SC, 30 MCG; BID; SC, 15 MCG; BID; SC
     Route: 058
     Dates: start: 20080522, end: 20080101
  3. SYMLIN [Suspect]
     Indication: TYPE 2 DIABETES MELLITUS
     Dosage: 60 MCG; BID; SC, 45 MCG; BID; SC, 30 MCG; BID; SC, 15 MCG; BID; SC
     Route: 058
     Dates: start: 20080608, end: 20080610
  4. SYMLIN [Suspect]
     Indication: TYPE 2 DIABETES MELLITUS
     Dosage: 60 MCG; BID; SC, 45 MCG; BID; SC, 30 MCG; BID; SC, 15 MCG; BID; SC
     Route: 058
     Dates: start: 20080610
  5. NOVOLOG [Concomitant]
  6. METFORMIN HCL [Concomitant]
  7. BYETTA [Concomitant]

REACTIONS (4)
  - ABDOMINAL DISTENSION [None]
  - FATIGUE [None]
  - NAUSEA [None]
  - SOMNOLENCE [None]
